FAERS Safety Report 7684094-6 (Version None)
Quarter: 2011Q3

REPORT INFORMATION
  Report Type: 
  Country: None (occurrence: None)
  Receive Date: 20110815
  Receipt Date: 20110516
  Transmission Date: 20111222
  Serious: No
  Sender: FDA-Public Use
  Company Number: US-BAYER-2011-042007

PATIENT
  Age: 42 Year
  Sex: Female

DRUGS (2)
  1. MIRENA [Suspect]
     Indication: CONTRACEPTION
     Dosage: 20 MCG/24HR, UNK
     Route: 015
     Dates: start: 20080805, end: 20110525
  2. MIRENA [Suspect]
     Indication: MENSTRUAL DISORDER

REACTIONS (4)
  - VAGINAL DISCHARGE [None]
  - VAGINITIS BACTERIAL [None]
  - CERVIX ERYTHEMA [None]
  - UTERINE PAIN [None]
